FAERS Safety Report 8336613-4 (Version None)
Quarter: 2012Q2

REPORT INFORMATION
  Report Type: 
  Country: None (occurrence: None)
  Receive Date: 20120504
  Receipt Date: 20120427
  Transmission Date: 20120825
  Serious: Yes (Death, Life-Threatening, Hospitalization)
  Sender: FDA-Public Use
  Company Number: DE-MILLENNIUM PHARMACEUTICALS, INC.-2012-00055

PATIENT

DRUGS (5)
  1. PALLADONE                          /00080902/ [Concomitant]
     Dosage: 12 MG, UNK
     Route: 048
     Dates: start: 20111111
  2. ACYCLOVIR [Concomitant]
     Indication: PROPHYLAXIS
     Dosage: 300 MG, UNK
     Route: 048
     Dates: start: 20111104
  3. COTRIM [Concomitant]
     Indication: PROPHYLAXIS
     Dosage: 960 MG, UNK
     Dates: start: 20110101
  4. NOVALGIN                           /00169801/ [Concomitant]
     Dosage: 2000 MG, UNK
     Dates: start: 20110905
  5. VELCADE [Suspect]
     Indication: MULTIPLE MYELOMA
     Dosage: UNK
     Route: 065
     Dates: start: 20111104, end: 20111227

REACTIONS (5)
  - GASTRIC ULCER [None]
  - GASTROINTESTINAL HAEMORRHAGE [None]
  - CACHEXIA [None]
  - POSTOPERATIVE WOUND INFECTION [None]
  - OSTEOSYNTHESIS [None]
